FAERS Safety Report 10745789 (Version 1)
Quarter: 2015Q1

REPORT INFORMATION
  Report Type: Spontaneous
  Country: AU (occurrence: AU)
  Receive Date: 20150128
  Receipt Date: 20150128
  Transmission Date: 20150721
  Serious: Yes (Other)
  Sender: FDA-Public Use
  Company Number: PHHY2015AU007352

PATIENT

DRUGS (5)
  1. VOLTAREN [Suspect]
     Active Substance: DICLOFENAC SODIUM
     Indication: SPINAL OSTEOARTHRITIS
     Dosage: 100 MG, QD
     Route: 065
  2. TURMERIC [Concomitant]
     Active Substance: TURMERIC
     Indication: PRODUCT USED FOR UNKNOWN INDICATION
     Route: 065
  3. PANADOL [Concomitant]
     Active Substance: ACETAMINOPHEN
     Indication: PRODUCT USED FOR UNKNOWN INDICATION
     Route: 065
  4. NEXIUM [Concomitant]
     Active Substance: ESOMEPRAZOLE MAGNESIUM
     Indication: PRODUCT USED FOR UNKNOWN INDICATION
     Route: 065
  5. VOLTAREN [Suspect]
     Active Substance: DICLOFENAC SODIUM
     Dosage: (50 TO 100) MG, QD
     Route: 065

REACTIONS (3)
  - Nausea [Unknown]
  - Peripheral artery stenosis [Unknown]
  - Kidney infection [Unknown]
